FAERS Safety Report 7526635-5 (Version None)
Quarter: 2011Q2

REPORT INFORMATION
  Report Type: 
  Country: None (occurrence: None)
  Receive Date: 20110606
  Receipt Date: 20110214
  Transmission Date: 20111010
  Serious: Yes (Other)
  Sender: FDA-Public Use
  Company Number: US-BAYER-201037538NA

PATIENT
  Age: 33 Year
  Sex: Female
  Weight: 57.143 kg

DRUGS (8)
  1. YASMIN [Suspect]
     Indication: PRODUCT USED FOR UNKNOWN INDICATION
     Dosage: UNK UNK, UNK
     Route: 048
     Dates: start: 20010101, end: 20040301
  2. MOTRIN [Concomitant]
     Dosage: UNK
     Route: 048
     Dates: start: 20040317
  3. YAZ [Suspect]
     Indication: PRODUCT USED FOR UNKNOWN INDICATION
     Dosage: UNK UNK, UNK
     Route: 048
     Dates: start: 20010101, end: 20040301
  4. VALIUM [Concomitant]
     Dosage: 10 MG, UNK
     Route: 048
     Dates: start: 20040317
  5. DROSPIRENONE AND ETHINYL ESTRADIOL [Suspect]
     Indication: PRODUCT USED FOR UNKNOWN INDICATION
     Dosage: UNK UNK, UNK
     Route: 048
     Dates: start: 20010101, end: 20040301
  6. PEPCID [Concomitant]
     Dosage: 20 MG, UNK
     Route: 048
     Dates: start: 20040317
  7. REGLAN [Concomitant]
     Dosage: 10 MG, UNK
     Route: 048
     Dates: start: 20040317
  8. KEFZOL [Concomitant]
     Dosage: UNK
     Route: 042
     Dates: start: 20040317

REACTIONS (4)
  - CHOLECYSTITIS [None]
  - GALLBLADDER INJURY [None]
  - CHOLELITHIASIS [None]
  - BILIARY COLIC [None]
